FAERS Safety Report 6221112-6 (Version None)
Quarter: 2009Q2

REPORT INFORMATION
  Report Type: 
  Country: None (occurrence: None)
  Receive Date: 20090610
  Receipt Date: 20090601
  Transmission Date: 20091009
  Serious: Yes (Other)
  Sender: FDA-Public Use
  Company Number: B0577520A

PATIENT
  Sex: Female

DRUGS (5)
  1. PAXIL [Suspect]
     Indication: DRUG USE FOR UNKNOWN INDICATION
     Route: 048
  2. MEILAX [Concomitant]
     Route: 048
  3. DOGMATYL [Concomitant]
     Route: 048
  4. RIVOTRIL [Concomitant]
     Route: 048
  5. HALCION [Concomitant]
     Route: 048

REACTIONS (5)
  - AFFECTIVE DISORDER [None]
  - AGGRESSION [None]
  - MOOD ALTERED [None]
  - SCREAMING [None]
  - THEFT [None]
